FAERS Safety Report 10011393 (Version 1)
Quarter: 2014Q1

REPORT INFORMATION
  Report Type: Spontaneous
  Country: US (occurrence: None)
  Receive Date: 20140311
  Receipt Date: 20140311
  Transmission Date: 20141002
  Serious: Yes (Death)
  Sender: FDA-Public Use
  Company Number: 1225714-2013-99914

PATIENT
  Age: 72 Year
  Sex: Male

DRUGS (4)
  1. SALINE [Suspect]
     Indication: HAEMODIALYSIS
     Dates: start: 20120511
  2. FRESNIUS 2008 TWISTER REVERSE FLOW OPTFLUX 180NRE [Concomitant]
  3. DIALYZER [Concomitant]
  4. DIALYSIS MACHINE 2008K [Concomitant]
     Dosage: 3/WEEK  UPARM BRAC
     Dates: start: 20120511

REACTIONS (4)
  - Cardiovascular disorder [None]
  - Unresponsive to stimuli [None]
  - Pulse absent [None]
  - Respiratory arrest [None]
